FAERS Safety Report 11370477 (Version 1)
Quarter: 2015Q3

REPORT INFORMATION
  Report Type: Spontaneous
  Country: US (occurrence: US)
  Receive Date: 20150812
  Receipt Date: 20150812
  Transmission Date: 20151125
  Serious: No
  Sender: FDA-Public Use
  Company Number: CHPA2015US009445

PATIENT
  Age: 70 Year
  Sex: Male

DRUGS (1)
  1. VOLTAREN [Suspect]
     Active Substance: DICLOFENAC SODIUM
     Indication: INADEQUATE LUBRICATION
     Dosage: UNK, ONCE/SINGLE
     Route: 061
     Dates: start: 20150809, end: 20150809

REACTIONS (6)
  - Product use issue [Unknown]
  - Application site warmth [Recovered/Resolved]
  - Drug administered at inappropriate site [Unknown]
  - Expired product administered [Unknown]
  - Application site pain [Recovered/Resolved]
  - Drug dispensed to wrong patient [Unknown]

NARRATIVE: CASE EVENT DATE: 20150809
